FAERS Safety Report 23786281 (Version 2)
Quarter: 2024Q3

REPORT INFORMATION
  Report Type: Spontaneous
  Country: DE (occurrence: DE)
  Receive Date: 20240426
  Receipt Date: 20240725
  Transmission Date: 20241016
  Serious: Yes (Other)
  Sender: AMGEN
  Company Number: DE-Vifor (International) Inc.-VIT-2024-03423

PATIENT

DRUGS (2)
  1. TAVNEOS [Suspect]
     Active Substance: AVACOPAN
     Indication: Anti-neutrophil cytoplasmic antibody positive vasculitis
     Dosage: UNK
  2. PREDNISOLONE [Concomitant]
     Active Substance: PREDNISOLONE
     Indication: Product used for unknown indication
     Dosage: THE CUMULATIVE PREDNISOLONE DOSE OVER 52 WEEKS WAS 3229 MG.
     Route: 065

REACTIONS (2)
  - Leukopenia [Unknown]
  - Pyrexia [Unknown]
